FAERS Safety Report 12957696 (Version 5)
Quarter: 2017Q4

REPORT INFORMATION
  Report Type: Report from Study
  Country: US (occurrence: US)
  Receive Date: 20161118
  Receipt Date: 20171222
  Transmission Date: 20180320
  Serious: Yes (Hospitalization)
  Sender: FDA-Public Use
  Company Number: US-ACTELION-A-US2016-145739

PATIENT
  Age: 59 Year
  Sex: Female
  Weight: 94.79 kg

DRUGS (5)
  1. TRACLEER [Suspect]
     Active Substance: BOSENTAN
     Indication: PULMONARY HYPERTENSION
     Dosage: 125 MG, BID
     Route: 048
     Dates: start: 20070425
  2. TYVASO [Concomitant]
     Active Substance: TREPROSTINIL
  3. ADCIRCA [Concomitant]
     Active Substance: TADALAFIL
  4. PREDNISONE. [Suspect]
     Active Substance: PREDNISONE
     Indication: PRODUCT USED FOR UNKNOWN INDICATION
     Route: 065
  5. AVASTIN [Concomitant]
     Active Substance: BEVACIZUMAB

REACTIONS (7)
  - Laryngeal oedema [Recovering/Resolving]
  - Pneumonia [Unknown]
  - Dysphonia [Recovering/Resolving]
  - Thrombosis [Unknown]
  - Laryngitis [Recovering/Resolving]
  - Weight increased [Unknown]
  - Influenza [Unknown]
